FAERS Safety Report 5035244-1 (Version None)
Quarter: 2006Q2

REPORT INFORMATION
  Report Type: 
  Country: None (occurrence: None)
  Receive Date: 20060627
  Receipt Date: 20060616
  Transmission Date: 20061013
  Serious: Yes (Hospitalization)
  Sender: FDA-Public Use
  Company Number: US-ROCHE-452104

PATIENT
  Age: 59 Year
  Sex: Female
  Weight: 49.9 kg

DRUGS (16)
  1. ZENAPAX [Suspect]
     Dosage: TAKEN WITHIN 12 HOURS OF LIVER TRANSPLANTATION AND INFUSED OVER 15 MINUTES.
     Route: 042
  2. ZENAPAX [Suspect]
     Dosage: DAY 3. INFUSED OVER 15 MINUTES.
     Route: 042
  3. ZENAPAX [Suspect]
     Dosage: DAY 8. INFUSED OVER 15 MINUTES.
     Route: 042
  4. MYCOPHENOLATE MOFETIL [Suspect]
     Route: 048
     Dates: start: 20051231
  5. MYCOPHENOLATE MOFETIL [Suspect]
     Route: 048
  6. TACROLIMUS [Suspect]
     Route: 048
     Dates: start: 20051231
  7. TACROLIMUS [Suspect]
     Route: 048
     Dates: start: 20060612
  8. PREDNISONE TAB [Suspect]
     Dosage: DOSE FORM REPORTED AS PILL
     Route: 048
     Dates: start: 20060104, end: 20060613
  9. BACTRIM [Concomitant]
     Dates: start: 20051231
  10. PROTONIX [Concomitant]
     Dates: start: 20060106
  11. LOVENOX [Concomitant]
     Dates: start: 20060202
  12. DIFLUCAN [Concomitant]
     Dates: start: 20060106
  13. MAGNESIUM OXIDE [Concomitant]
     Dates: start: 20060320
  14. FERROUS SULFATE TAB [Concomitant]
     Dates: start: 20060209
  15. FLORINEF [Concomitant]
     Dates: start: 20060320
  16. LANTUS [Concomitant]
     Dosage: DRUG NAME REPORTED AS LANTUS INSULIN
     Dates: start: 20060202

REACTIONS (1)
  - PNEUMONIA [None]
